FAERS Safety Report 8157798-9 (Version None)
Quarter: 2012Q1

REPORT INFORMATION
  Report Type: 
  Country: None (occurrence: None)
  Receive Date: 20120222
  Receipt Date: 20111227
  Transmission Date: 20120608
  Serious: No
  Sender: FDA-Public Use
  Company Number: US-ASTRAZENECA-2011SE78476

PATIENT
  Sex: Male

DRUGS (3)
  1. AMLODIPINE BESYLATE [Concomitant]
  2. LISINOPRIL AND HYDROCHLOROTHIAZIDE [Suspect]
     Route: 048
  3. HYDRALAZINE HCL [Suspect]
     Route: 065

REACTIONS (1)
  - LOSS OF LIBIDO [None]
